FAERS Safety Report 7680054-X (Version None)
Quarter: 2011Q3

REPORT INFORMATION
  Report Type: 
  Country: None (occurrence: None)
  Receive Date: 20110805
  Receipt Date: 20110722
  Transmission Date: 20111222
  Serious: Yes (Other)
  Sender: FDA-Public Use
  Company Number: 2011SP034849

PATIENT
  Age: 47 Year
  Sex: Female

DRUGS (2)
  1. PEG-INTRON [Suspect]
     Indication: HEPATITIS C
     Dates: start: 20110705, end: 20110718
  2. RIBAVIRIN [Suspect]
     Indication: HEPATITIS C
     Dates: start: 20110705, end: 20110718

REACTIONS (12)
  - EYE PRURITUS [None]
  - CHEILITIS [None]
  - HEADACHE [None]
  - EYE IRRITATION [None]
  - FATIGUE [None]
  - ARTHRALGIA [None]
  - ORAL MUCOSAL ERYTHEMA [None]
  - MOUTH INJURY [None]
  - TONGUE DISORDER [None]
  - SWOLLEN TONGUE [None]
  - MUSCLE SPASMS [None]
  - DECREASED APPETITE [None]
